FAERS Safety Report 7584464-0 (Version None)
Quarter: 2011Q2

REPORT INFORMATION
  Report Type: 
  Country: None (occurrence: None)
  Receive Date: 20110630
  Receipt Date: 20110617
  Transmission Date: 20111010
  Serious: No
  Sender: FDA-Public Use
  Company Number: US-ELI_LILLY_AND_COMPANY-US201106005113

PATIENT
  Sex: Female
  Weight: 136.5 kg

DRUGS (10)
  1. BYETTA [Suspect]
     Dosage: 10 UG, BID
     Route: 058
  2. COREG [Concomitant]
     Indication: HYPERTENSION
     Dosage: 12.5 MG, BID
     Route: 048
  3. VERPAMIL HCL [Concomitant]
     Indication: HYPERTENSION
     Dosage: 240 MG, QD
     Route: 048
  4. HUMALOG [Concomitant]
     Indication: INSULIN-REQUIRING TYPE 2 DIABETES MELLITUS
     Dosage: UNK
     Dates: end: 20110616
  5. HUMULIN N [Concomitant]
     Indication: INSULIN-REQUIRING TYPE 2 DIABETES MELLITUS
     Dosage: UNK, EACH EVENING
     Route: 058
  6. ACTOS [Concomitant]
     Indication: INSULIN-REQUIRING TYPE 2 DIABETES MELLITUS
     Dosage: UNK, QD
     Route: 048
  7. BYETTA [Suspect]
     Indication: INSULIN-REQUIRING TYPE 2 DIABETES MELLITUS
     Dosage: 5, UG BID
     Route: 058
  8. EFFEXOR [Concomitant]
     Indication: DEPRESSION
     Dosage: 75 MG, QD
     Route: 048
  9. BYETTA [Suspect]
     Dosage: 5 UG, BID
     Route: 058
     Dates: start: 20110616
  10. DIOVAN [Concomitant]
     Indication: HYPERTENSION
     Dosage: 325 MG, QD
     Route: 048

REACTIONS (2)
  - OFF LABEL USE [None]
  - RENAL IMPAIRMENT [None]
